FAERS Safety Report 23653172 (Version 1)
Quarter: 2024Q1

REPORT INFORMATION
  Report Type: Spontaneous
  Country: FR (occurrence: FR)
  Receive Date: 20240320
  Receipt Date: 20240320
  Transmission Date: 20240410
  Serious: Yes (Hospitalization, Disabling)
  Sender: FDA-Public Use
  Company Number: None

PATIENT
  Age: 35 Year
  Sex: Male
  Weight: 103 kg

DRUGS (5)
  1. QUETIAPINE [Suspect]
     Active Substance: QUETIAPINE
     Indication: Bipolar I disorder
     Dosage: 1 TABLET PER DAY. SUSTAINED RELEASE TABLET?DAILY DOSE: 1 DOSAGE FORM
     Route: 048
     Dates: start: 20160715, end: 20161201
  2. OLANZAPINE [Suspect]
     Active Substance: OLANZAPINE
     Dates: end: 2016
  3. OLANZAPINE [Suspect]
     Active Substance: OLANZAPINE
     Dosage: HE OPTED FOR A ZYPREXA-XEROQUEL SWITCH
  4. ZOPICLONE [Concomitant]
     Active Substance: ZOPICLONE
     Dosage: ZOPICLONE - 7.5 MG - 1 TABLET AT BEDTIME ?DAILY DOSE: 1 DOSAGE FORM
  5. TRIMEPRAZINE [Concomitant]
     Active Substance: TRIMEPRAZINE
     Dosage: THERALENE 5 MG (ALIMEMAZINE) - 2 TABLETS AT BEDTIME?DAILY DOSE: 2 DOSAGE FORM

REACTIONS (5)
  - Metabolic surgery [Recovered/Resolved with Sequelae]
  - Abnormal weight gain [Recovering/Resolving]
  - Obesity [Unknown]
  - Apathy [Unknown]
  - Insomnia [Unknown]

NARRATIVE: CASE EVENT DATE: 20160901
